FAERS Safety Report 7450134-2 (Version None)
Quarter: 2011Q2

REPORT INFORMATION
  Report Type: 
  Country: None (occurrence: None)
  Receive Date: 20110421
  Receipt Date: 20110411
  Transmission Date: 20111010
  Serious: Yes (Other)
  Sender: FDA-Public Use
  Company Number: 1000020144

PATIENT
  Age: 35 Year
  Sex: Female

DRUGS (2)
  1. NARMIG (NARATRIPTAN HYDROCHLORIDE) (TABLETS) [Suspect]
     Indication: MIGRAINE
     Dosage: ORAL
     Route: 048
  2. ESCITALOPRAM OXALATE [Suspect]
     Indication: ANXIETY
     Dosage: 20 MG (20 MG,  1 IN 1 D), ORAL
     Route: 048

REACTIONS (2)
  - SEROTONIN SYNDROME [None]
  - DRUG INTERACTION [None]
